FAERS Safety Report 4581907-1 (Version None)
Quarter: 2005Q1

REPORT INFORMATION
  Report Type: 
  Country: None (occurrence: None)
  Receive Date: 20050214
  Receipt Date: 20040402
  Transmission Date: 20050727
  Serious: No
  Sender: FDA-Public Use
  Company Number: US-GLAXOSMITHKLINE-A0505663A

PATIENT
  Age: 48 Year
  Sex: Female

DRUGS (2)
  1. LAMICTAL [Suspect]
     Indication: BIPOLAR DISORDER
     Dosage: 100MG PER DAY
     Route: 048
     Dates: start: 20031002, end: 20031114
  2. MULTIVITAMIN [Concomitant]

REACTIONS (2)
  - LYMPHADENOPATHY [None]
  - RASH [None]
